FAERS Safety Report 11802642 (Version 1)
Quarter: 2015Q4

REPORT INFORMATION
  Report Type: Spontaneous
  Country: US (occurrence: US)
  Receive Date: 20151204
  Receipt Date: 20151204
  Transmission Date: 20160305
  Serious: No
  Sender: FDA-Public Use
  Company Number: US-ASTRAZENECA-2015SF10901

PATIENT
  Age: 29379 Day
  Sex: Female
  Weight: 57.2 kg

DRUGS (3)
  1. LYNPARZA [Suspect]
     Active Substance: OLAPARIB
     Indication: OVARIAN CANCER
     Route: 048
     Dates: start: 20151104
  2. BABY ASPIRIN [Concomitant]
     Active Substance: ASPIRIN
     Indication: COAGULOPATHY
     Route: 048
  3. LYNPARZA [Suspect]
     Active Substance: OLAPARIB
     Indication: OVARIAN CANCER
     Route: 048

REACTIONS (8)
  - Pyrexia [Unknown]
  - Muscle spasms [Unknown]
  - Abdominal pain [Unknown]
  - Flatulence [Unknown]
  - Intentional product misuse [Unknown]
  - Hypertension [Unknown]
  - Arthralgia [Unknown]
  - Eructation [Unknown]

NARRATIVE: CASE EVENT DATE: 20151111
